FAERS Safety Report 12547732 (Version 1)
Quarter: 2016Q3

REPORT INFORMATION
  Report Type: Report from Study
  Country: CA (occurrence: CA)
  Receive Date: 20160712
  Receipt Date: 20160712
  Transmission Date: 20161109
  Serious: Yes (Death, Other)
  Sender: FDA-Public Use
  Company Number: CA-TEVA-675957ACC

PATIENT

DRUGS (3)
  1. ACETAMINOPHEN. [Concomitant]
     Active Substance: ACETAMINOPHEN
     Indication: PRODUCT USED FOR UNKNOWN INDICATION
     Dosage: ADMINISTERED 30 TO 60 MIN BEFORE OBINUTUZUMAB INFUSIONS)
     Route: 065
  2. OBINUTUZUMAB [Suspect]
     Active Substance: OBINUTUZUMAB
     Indication: NON-HODGKIN^S LYMPHOMA
     Dosage: DAY 1, 8, 15 FOR CYCLE 1 AND DAY 1 FOR CYCLE 2 TO 6 FOR UPTO SIX 28 DAY CYCLES
     Route: 042
  3. BENDAMUSTINE HYDROCHLORIDE. [Suspect]
     Active Substance: BENDAMUSTINE HYDROCHLORIDE
     Indication: NON-HODGKIN^S LYMPHOMA
     Dosage: DAY 1 AND 2 FOR UP TO SIX CYCLES
     Route: 042

REACTIONS (1)
  - Vascular pseudoaneurysm [Fatal]
